FAERS Safety Report 13859510 (Version 1)
Quarter: 2017Q3

REPORT INFORMATION
  Report Type: Spontaneous
  Country: US (occurrence: US)
  Receive Date: 20170811
  Receipt Date: 20170811
  Transmission Date: 20171127
  Serious: No
  Sender: FDA-Public Use
  Company Number: US-PFIZER INC-2017346804

PATIENT
  Age: 51 Year
  Sex: Female
  Weight: 113 kg

DRUGS (5)
  1. METHOTREXATE. [Concomitant]
     Active Substance: METHOTREXATE
     Dosage: 1 G, WEEKLY, ONCE A WEEK
  2. LEUCOVORIN. [Concomitant]
     Active Substance: LEUCOVORIN
     Indication: NAUSEA
     Dosage: 2 DF, UNK
  3. CITALOPRAM [Concomitant]
     Active Substance: CITALOPRAM HYDROBROMIDE
     Dosage: UNK
  4. XELJANZ XR [Suspect]
     Active Substance: TOFACITINIB CITRATE
     Indication: RHEUMATOID ARTHRITIS
     Dosage: 11 MG, 1X/DAY
     Route: 048
  5. METHOTREXATE. [Concomitant]
     Active Substance: METHOTREXATE
     Indication: RHEUMATOID ARTHRITIS
     Dosage: 0.9 G, WEEKLY, ONCE A WEEK

REACTIONS (4)
  - Pharyngeal oedema [Recovered/Resolved]
  - Musculoskeletal stiffness [Recovered/Resolved]
  - Dysphagia [Recovered/Resolved]
  - Neck pain [Unknown]
